FAERS Safety Report 10629408 (Version 2)
Quarter: 2014Q4

REPORT INFORMATION
  Report Type: Spontaneous
  Country: US (occurrence: US)
  Receive Date: 20141205
  Receipt Date: 20141205
  Transmission Date: 20150529
  Serious: No
  Sender: FDA-Public Use
  Company Number: US-BRISTOL-MYERS SQUIBB COMPANY-21054424

PATIENT
  Age: 66 Year
  Sex: Female
  Weight: 117.91 kg

DRUGS (7)
  1. JANUVIA [Concomitant]
     Active Substance: SITAGLIPTIN PHOSPHATE
  2. RAMIPRIL. [Concomitant]
     Active Substance: RAMIPRIL
  3. NORVASC [Concomitant]
     Active Substance: AMLODIPINE BESYLATE
  4. MOBIC [Concomitant]
     Active Substance: MELOXICAM
     Indication: ARTHRALGIA
  5. GLIMEPIRIDE. [Concomitant]
     Active Substance: GLIMEPIRIDE
  6. ALTACE [Concomitant]
     Active Substance: RAMIPRIL
  7. GLUCOPHAGE [Suspect]
     Active Substance: METFORMIN HYDROCHLORIDE
     Dosage: MOST RECENT DOSE: FEB2014

REACTIONS (1)
  - Adverse event [Unknown]
